FAERS Safety Report 17491733 (Version 13)
Quarter: 2021Q2

REPORT INFORMATION
  Report Type: Spontaneous
  Country: DE (occurrence: DE)
  Receive Date: 20200304
  Receipt Date: 20210619
  Transmission Date: 20210716
  Serious: Yes (Other)
  Sender: FDA-Public Use
  Company Number: DE-AUROBINDO-AUR-APL-2020-010340

PATIENT
  Sex: Female
  Weight: 52 kg

DRUGS (5)
  1. LETROZOLE. [Suspect]
     Active Substance: LETROZOLE
     Indication: BREAST CANCER METASTATIC
     Dosage: 2.5 MILLIGRAM, ONCE A DAY
     Route: 048
     Dates: start: 20191113, end: 20200218
  2. KISQALI [Suspect]
     Active Substance: RIBOCICLIB
     Indication: BREAST CANCER METASTATIC
     Dosage: 600 MILLIGRAM, ONCE A DAY
     Route: 048
     Dates: start: 20191209
  3. EXEMESTANE. [Suspect]
     Active Substance: EXEMESTANE
     Indication: BREAST CANCER METASTATIC
     Dosage: 25 MILLIGRAM, ONCE A DAY
     Route: 048
     Dates: start: 20200219, end: 20200318
  4. KISQALI [Suspect]
     Active Substance: RIBOCICLIB
     Dosage: 600 MILLIGRAM, ONCE A DAY (21 DAYS INTAKE ,7 DAYS PAUSE)
     Route: 048
     Dates: start: 20191210, end: 20191231
  5. EXEMESTANE. [Concomitant]
     Active Substance: EXEMESTANE
     Indication: BREAST CANCER METASTATIC
     Dosage: 25 MILLIGRAM, ONCE A DAY
     Route: 065
     Dates: start: 20200219

REACTIONS (16)
  - Dermatitis [Recovered/Resolved]
  - Epistaxis [Recovered/Resolved]
  - Decreased appetite [Recovered/Resolved]
  - Sleep disorder [Not Recovered/Not Resolved]
  - Swelling of eyelid [Not Recovered/Not Resolved]
  - Dizziness [Recovered/Resolved]
  - Arthralgia [Recovered/Resolved]
  - Tooth disorder [Recovered/Resolved]
  - Pulpitis dental [Recovered/Resolved]
  - Abdominal pain [Not Recovered/Not Resolved]
  - Radiation skin injury [Recovered/Resolved]
  - Alopecia [Not Recovered/Not Resolved]
  - Taste disorder [Recovered/Resolved]
  - Diarrhoea [Recovered/Resolved]
  - Cystitis [Recovered/Resolved]
  - Pyrexia [Recovered/Resolved]

NARRATIVE: CASE EVENT DATE: 20191115
